FAERS Safety Report 21264945 (Version 3)
Quarter: 2022Q3

REPORT INFORMATION
  Report Type: Spontaneous
  Country: DE (occurrence: DE)
  Receive Date: 20220829
  Receipt Date: 20220920
  Transmission Date: 20221027
  Serious: Yes (Death)
  Sender: FDA-Public Use
  Company Number: DE-BIOGEN-2022BI01150565

PATIENT
  Sex: Male

DRUGS (1)
  1. TYSABRI [Suspect]
     Active Substance: NATALIZUMAB
     Indication: Secondary progressive multiple sclerosis
     Route: 050
     Dates: end: 20130503

REACTIONS (2)
  - Cardiac failure [Fatal]
  - Off label use [Unknown]
